FAERS Safety Report 8518222-7 (Version None)
Quarter: 2012Q3

REPORT INFORMATION
  Report Type: 
  Country: None (occurrence: None)
  Receive Date: 20120718
  Receipt Date: 20111122
  Transmission Date: 20120928
  Serious: No
  Sender: FDA-Public Use
  Company Number: US-BRISTOL-MYERS SQUIBB COMPANY-16242638

PATIENT
  Sex: Male

DRUGS (1)
  1. COUMADIN [Suspect]
     Dosage: MISSED ON 20NOV2011; TAKEN AT 21NOV2011 MORNING

REACTIONS (2)
  - DRUG DOSE OMISSION [None]
  - INTERNATIONAL NORMALISED RATIO DECREASED [None]
